FAERS Safety Report 9314594 (Version 2)
Quarter: 2013Q2

REPORT INFORMATION
  Report Type: Spontaneous
  Country: JP (occurrence: JP)
  Receive Date: 20130529
  Receipt Date: 20130627
  Transmission Date: 20140414
  Serious: Yes (Other)
  Sender: FDA-Public Use
  Company Number: JP-ASTELLAS-2013JP006069

PATIENT
  Age: 79 Year
  Sex: Female

DRUGS (5)
  1. FUNGUARD [Suspect]
     Indication: FUNGAL INFECTION
     Dosage: 50 MG, UID/QD
     Route: 041
     Dates: start: 20130508, end: 20130513
  2. BAKTAR [Concomitant]
     Dosage: 4 G, UID/QD
     Route: 048
     Dates: start: 20130428, end: 20130513
  3. BONALON [Concomitant]
     Dosage: UNK
     Route: 042
     Dates: start: 201302
  4. PREDONINE                          /00016201/ [Concomitant]
     Dosage: 30 MG, UNKNOWN/D
     Route: 048
     Dates: start: 20130201, end: 201304
  5. PREDONINE                          /00016201/ [Concomitant]
     Dosage: 12 MG, UNKNOWN/D
     Route: 048
     Dates: start: 201304

REACTIONS (1)
  - Interstitial lung disease [Recovering/Resolving]
